FAERS Safety Report 4926500-3 (Version None)
Quarter: 2006Q1

REPORT INFORMATION
  Report Type: 
  Country: None (occurrence: None)
  Receive Date: 20060228
  Receipt Date: 20050421
  Transmission Date: 20060701
  Serious: No
  Sender: FDA-Public Use
  Company Number: US-GLAXOSMITHKLINE-A0555215A

PATIENT
  Age: 36 Year
  Sex: Female

DRUGS (2)
  1. LAMICTAL [Suspect]
     Indication: DRUG USE FOR UNKNOWN INDICATION
     Dosage: 25MG TWICE PER DAY
     Route: 048
  2. WELLBUTRIN [Suspect]
     Indication: BIPOLAR DISORDER
     Route: 048
     Dates: start: 20040101

REACTIONS (2)
  - DIZZINESS [None]
  - DRUG INEFFECTIVE [None]
